FAERS Safety Report 20117897 (Version 2)
Quarter: 2021Q4

REPORT INFORMATION
  Report Type: Spontaneous
  Country: US (occurrence: US)
  Receive Date: 20211126
  Receipt Date: 20211219
  Transmission Date: 20220303
  Serious: No
  Sender: FDA-Public Use
  Company Number: US-ORGANON-O2111USA002182

PATIENT
  Age: 28 Year
  Sex: Female
  Weight: 74.38 kg

DRUGS (1)
  1. NEXPLANON [Suspect]
     Active Substance: ETONOGESTREL
     Indication: Contraception
     Dosage: 68 MG ROD IN LEFT UPPER (NON-DOMINANT) ARM
     Route: 059
     Dates: start: 20200612, end: 20211116

REACTIONS (5)
  - Vaginal haemorrhage [Recovering/Resolving]
  - Weight increased [Recovering/Resolving]
  - Device breakage [Recovered/Resolved]
  - Device placement issue [Recovered/Resolved]
  - Complication of device removal [Recovered/Resolved]

NARRATIVE: CASE EVENT DATE: 20200612
